FAERS Safety Report 9014214 (Version 1)
Quarter: 2013Q1

REPORT INFORMATION
  Report Type: Spontaneous
  Country: US (occurrence: US)
  Receive Date: 20130115
  Receipt Date: 20130115
  Transmission Date: 20140127
  Serious: Yes (Death)
  Sender: FDA-Public Use
  Company Number: US-ROXANE LABORATORIES, INC.-2013-RO-00048RO

PATIENT
  Age: 19 Year
  Sex: Female

DRUGS (4)
  1. CITALOPRAM [Suspect]
  2. KEPPRA [Suspect]
  3. LAMOTRIGINE [Suspect]
  4. ZONISAMIDE [Suspect]

REACTIONS (1)
  - Convulsion [Fatal]
